FAERS Safety Report 4838062-X (Version None)
Quarter: 2005Q4

REPORT INFORMATION
  Report Type: 
  Country: None (occurrence: None)
  Receive Date: 20051128
  Receipt Date: 20050725
  Transmission Date: 20060501
  Serious: Yes (Other)
  Sender: FDA-Public Use
  Company Number: PHBS2005BE10924

PATIENT
  Age: 61 Year
  Sex: Female

DRUGS (8)
  1. ZOMETA [Suspect]
     Indication: MULTIPLE MYELOMA
     Dosage: 4 MG  1X/15 DAYS
     Route: 065
     Dates: start: 20040423, end: 20041014
  2. ZOMETA [Suspect]
     Dosage: 4 MG, QMO
     Dates: start: 20041108, end: 20050613
  3. RADIOTHERAPY [Concomitant]
     Dosage: 25 SESSIONS - 40 GG OF MAXILLA
     Dates: start: 20040804, end: 20040905
  4. DEXAMETHASONE [Concomitant]
     Dosage: 40 MG, QW2
     Route: 065
     Dates: start: 20040517, end: 20041220
  5. THALIDOMIDE [Concomitant]
     Dosage: 400 MG/D
     Route: 065
     Dates: start: 20040517, end: 20040703
  6. THALIDOMIDE [Concomitant]
     Dosage: 200 MG/D
     Route: 065
     Dates: start: 20040703, end: 20040809
  7. THALIDOMIDE [Concomitant]
     Dosage: 300 MG/D
     Route: 065
     Dates: start: 20040809, end: 20041018
  8. THALIDOMIDE [Concomitant]
     Dosage: 400 MG/D
     Route: 065
     Dates: start: 20041018

REACTIONS (5)
  - ESCHERICHIA INFECTION [None]
  - GINGIVAL ULCERATION [None]
  - KLEBSIELLA INFECTION [None]
  - OSTEONECROSIS [None]
  - WOUND DEBRIDEMENT [None]
